FAERS Safety Report 8486010 (Version 3)
Quarter: 2012Q4

REPORT INFORMATION
  Report Type: 
  Country: US (occurrence: US)
  Receive Date: 20120331
  Receipt Date: 20121217
  Transmission Date: 20130627
  Serious: Yes (Life-Threatening, Hospitalization, Other)
  Sender: FDA-Public Use
  Company Number: PHEH2012US001283

PATIENT
  Age: 57 Year
  Sex: Female
  Weight: 115.65 kg

DRUGS (17)
  1. GILENYA [Suspect]
     Indication: MULTIPLE SCLEROSIS
     Dosage: 0.5 mg, QD
     Route: 048
     Dates: start: 20110901, end: 20111201
  2. FUROSEMIDE [Concomitant]
     Dosage: UNK UKN, UNK
  3. BUDEPRION [Concomitant]
     Dosage: 150mg/12hours, UNK
     Route: 048
  4. APO-BACLOFEN [Concomitant]
     Dosage: UNK UKN, UNK
  5. GABAPENTIN [Concomitant]
     Dosage: 300 mg, UNK
     Route: 048
     Dates: start: 20110301
  6. IMITREX [Concomitant]
     Dosage: UNK UKN, UNK
  7. AMINOPYRIDINE [Concomitant]
     Dosage: 5 mg, UNK
     Dates: start: 20110926
  8. AMINOPYRIDINE [Concomitant]
     Dosage: 60 mg, UNK
     Dates: start: 20110331
  9. POTASSIUM [Concomitant]
     Dosage: UNK UKN, UNK
  10. FOSAMAX [Concomitant]
     Dosage: 70 mg, UNK
     Route: 048
  11. BACLOFEN [Concomitant]
     Dosage: 10 mg, UNK
     Route: 048
     Dates: start: 20110808
  12. KLOR-CON [Concomitant]
     Dosage: 20 MEq, UNK
     Route: 048
  13. ZANAFLEX [Concomitant]
     Dosage: 4 mg, UNK
     Route: 048
  14. VESICARE [Concomitant]
     Dosage: 5 mg, UNK
     Route: 048
  15. PHYSIOTHERAPY [Concomitant]
  16. TIZANIDINE HYDROCHLORIDE [Concomitant]
     Dosage: 1 DF, QD
     Route: 048
  17. LASIX [Concomitant]

REACTIONS (10)
  - Cellulitis [Recovering/Resolving]
  - Oedema [Recovering/Resolving]
  - Oedema peripheral [Unknown]
  - Pseudomonas infection [Recovering/Resolving]
  - Neurogenic bladder [Unknown]
  - Mobility decreased [Unknown]
  - Muscular weakness [Unknown]
  - Urge incontinence [Unknown]
  - Asthenia [Unknown]
  - Drug ineffective [Unknown]
